FAERS Safety Report 20556731 (Version 2)
Quarter: 2022Q1

REPORT INFORMATION
  Report Type: Report from Study
  Country: EG (occurrence: EG)
  Receive Date: 20220307
  Receipt Date: 20220312
  Transmission Date: 20220423
  Serious: Yes (Death, Other)
  Sender: FDA-Public Use
  Company Number: EG-BAYER-2022A030945

PATIENT

DRUGS (1)
  1. EYLEA [Suspect]
     Active Substance: AFLIBERCEPT
     Indication: Diabetic retinal oedema
     Dosage: UNK
     Route: 031
     Dates: start: 20201103

REACTIONS (1)
  - Death [Fatal]
